FAERS Safety Report 7763781-5 (Version None)
Quarter: 2011Q3

REPORT INFORMATION
  Report Type: 
  Country: None (occurrence: None)
  Receive Date: 20110916
  Receipt Date: 20110909
  Transmission Date: 20111222
  Serious: Yes (Death, Congenital Anomaly)
  Sender: FDA-Public Use
  Company Number: 2011MA013402

PATIENT
  Sex: Female

DRUGS (1)
  1. SERTRALINE HYDROCHLORIDE [Suspect]
     Indication: MATERNAL EXPOSURE DURING PREGNANCY
     Dosage: 150 MG; QD; TRPL
     Route: 064
     Dates: start: 20110101

REACTIONS (3)
  - CONGENITAL ABSENCE OF CRANIAL VAULT [None]
  - MATERNAL DRUGS AFFECTING FOETUS [None]
  - ABORTION INDUCED [None]
